FAERS Safety Report 5425177-0 (Version None)
Quarter: 2007Q3

REPORT INFORMATION
  Report Type: 
  Country: None (occurrence: None)
  Receive Date: 20070824
  Receipt Date: 20070630
  Transmission Date: 20080115
  Serious: No
  Sender: FDA-Public Use
  Company Number: JP-ASTRAZENECA-2007AP05257

PATIENT
  Sex: Male

DRUGS (3)
  1. SEROQUEL [Suspect]
     Route: 048
     Dates: start: 20070503, end: 20070516
  2. SEROQUEL [Suspect]
     Route: 048
     Dates: start: 20070517, end: 20070528
  3. SEROQUEL [Suspect]
     Route: 048
     Dates: start: 20070529

REACTIONS (1)
  - PLATELET COUNT DECREASED [None]
